FAERS Safety Report 4977676-3 (Version None)
Quarter: 2006Q2

REPORT INFORMATION
  Report Type: 
  Country: None (occurrence: None)
  Receive Date: 20060420
  Receipt Date: 20050803
  Transmission Date: 20061013
  Serious: No
  Sender: FDA-Public Use
  Company Number: US-GLAXOSMITHKLINE-A0568833A

PATIENT
  Age: 31 Year
  Sex: Male

DRUGS (1)
  1. ESKALITH [Suspect]
     Dosage: 450MG PER DAY
     Route: 048
     Dates: start: 19940101

REACTIONS (5)
  - ANOREXIA [None]
  - ANXIETY [None]
  - DEPRESSION [None]
  - INSOMNIA [None]
  - PHARMACEUTICAL PRODUCT COMPLAINT [None]
